FAERS Safety Report 25441155 (Version 2)
Quarter: 2025Q4

REPORT INFORMATION
  Report Type: Spontaneous
  Country: US (occurrence: None)
  Receive Date: 20250616
  Receipt Date: 20251024
  Transmission Date: 20260119
  Serious: No
  Sender: UCB
  Company Number: US-UCBSA-2025016421

PATIENT
  Weight: 130.63 kg

DRUGS (1)
  1. BIMZELX [Suspect]
     Active Substance: BIMEKIZUMAB-BKZX
     Indication: Hidradenitis
     Dosage: 320 MILLIGRAM, EV 4 WEEKS

REACTIONS (4)
  - Depression [Recovered/Resolved]
  - Nausea [Unknown]
  - Diarrhoea [Unknown]
  - Alopecia [Recovered/Resolved]
